FAERS Safety Report 5571571-7 (Version None)
Quarter: 2007Q4

REPORT INFORMATION
  Report Type: 
  Country: None (occurrence: None)
  Receive Date: 20071221
  Receipt Date: 20071218
  Transmission Date: 20080405
  Serious: Yes (Hospitalization, Other)
  Sender: FDA-Public Use
  Company Number: CH-ELI_LILLY_AND_COMPANY-CH200712002593

PATIENT
  Sex: Male

DRUGS (5)
  1. CYMBALTA [Suspect]
     Indication: DEPRESSION
     Dosage: 60 MG, DAILY (1/D)
     Route: 065
     Dates: start: 20071001, end: 20071201
  2. CYMBALTA [Suspect]
     Dosage: 90 MG, DAILY (1/D)
     Route: 065
     Dates: start: 20071201, end: 20071201
  3. CYMBALTA [Suspect]
     Dosage: 60 MG, DAILY (1/D)
     Route: 065
     Dates: start: 20071201
  4. COMBIVIR [Concomitant]
     Indication: HIV INFECTION
     Dosage: UNK, UNK
     Dates: start: 20071105
  5. KALETRA [Concomitant]
     Indication: HIV INFECTION
     Dosage: UNK, UNK
     Dates: start: 20071105

REACTIONS (3)
  - DRUG INTERACTION [None]
  - MYELITIS [None]
  - TREMOR [None]
